FAERS Safety Report 16084302 (Version 1)
Quarter: 2019Q1

REPORT INFORMATION
  Report Type: Spontaneous
  Country: US (occurrence: US)
  Receive Date: 20190318
  Receipt Date: 20190318
  Transmission Date: 20190418
  Serious: No
  Sender: FDA-Public Use
  Company Number: US-NEXGEN PHARMA, INC.-2064168

PATIENT
  Sex: Male

DRUGS (1)
  1. POLYETHYLENE GLYCOL 3350 NF POWDER [Suspect]
     Active Substance: POLYETHYLENE GLYCOL 3350
     Route: 048

REACTIONS (5)
  - Dependence [Unknown]
  - Proctalgia [Unknown]
  - Dermatitis contact [Unknown]
  - Anorectal discomfort [Unknown]
  - Drug ineffective [Unknown]
